FAERS Safety Report 20010158 (Version 1)
Quarter: 2021Q4

REPORT INFORMATION
  Report Type: Spontaneous
  Country: JP (occurrence: JP)
  Receive Date: 20211029
  Receipt Date: 20211029
  Transmission Date: 20220304
  Serious: Yes (Hospitalization, Other)
  Sender: FDA-Public Use
  Company Number: JP-MACLEODS PHARMACEUTICALS US LTD-MAC2021033123

PATIENT

DRUGS (6)
  1. CLOPIDOGREL [Suspect]
     Active Substance: CLOPIDOGREL BISULFATE
     Indication: Antiplatelet therapy
     Dosage: UNK
     Route: 065
  2. ASPIRIN [Suspect]
     Active Substance: ASPIRIN
     Indication: Antiplatelet therapy
     Dosage: UNK
     Route: 065
  3. LIMAPROST [Suspect]
     Active Substance: LIMAPROST
     Indication: Antiplatelet therapy
     Dosage: UNK
     Route: 065
  4. SARPOGRELATE [Suspect]
     Active Substance: SARPOGRELATE
     Indication: Antiplatelet therapy
     Dosage: UNK
     Route: 065
  5. DIPYRIDAMOLE [Suspect]
     Active Substance: DIPYRIDAMOLE
     Indication: Antiplatelet therapy
     Dosage: UNK
     Route: 065
  6. ALFADEX [Concomitant]
     Active Substance: ALFADEX
     Indication: Antiplatelet therapy
     Dosage: UNK
     Route: 065

REACTIONS (1)
  - Spinal epidural haematoma [Recovering/Resolving]
